FAERS Safety Report 16342703 (Version 2)
Quarter: 2019Q2

REPORT INFORMATION
  Report Type: Other
  Country: CA (occurrence: CA)
  Receive Date: 20190522
  Receipt Date: 20190612
  Transmission Date: 20190711
  Serious: Yes (Disabling)
  Sender: FDA-Public Use
  Company Number: CA-APOTEX-2019AP014113

PATIENT
  Age: 32 Year
  Sex: Female

DRUGS (1)
  1. VALACYCLOVIR [Suspect]
     Active Substance: VALACYCLOVIR HYDROCHLORIDE
     Indication: INFECTION
     Dosage: UNK
     Route: 048

REACTIONS (2)
  - Herpes virus infection [Recovering/Resolving]
  - Drug ineffective [Recovering/Resolving]
